FAERS Safety Report 9820605 (Version 1)
Quarter: 2013Q4

REPORT INFORMATION
  Report Type: Spontaneous
  Country: US (occurrence: None)
  Receive Date: 20131028
  Receipt Date: 20131028
  Transmission Date: 20140711
  Serious: Yes (Other)
  Sender: FDA-Public Use
  Company Number: 2013US001660

PATIENT
  Age: 46 Year
  Sex: Female

DRUGS (5)
  1. ICLUSIG [Suspect]
     Indication: CHRONIC MYELOID LEUKAEMIA
     Route: 048
     Dates: start: 20130306, end: 20130508
  2. HYDROCHLOROTHIAZIDE (HYDROCHLOROTHIAZIDE) [Concomitant]
  3. AZELASTINE (AZELASTINE) SPRAY [Concomitant]
  4. NEXIUM I.V. [Concomitant]
  5. DULERA (FORMOTEROL FUMARATE,MOMETASONE FUROATE) [Concomitant]

REACTIONS (3)
  - Blister [None]
  - Muscle atrophy [None]
  - Myalgia [None]
